FAERS Safety Report 25032082 (Version 3)
Quarter: 2025Q2

REPORT INFORMATION
  Report Type: Spontaneous
  Country: CA (occurrence: CA)
  Receive Date: 20250303
  Receipt Date: 20250501
  Transmission Date: 20250716
  Serious: Yes (Hospitalization, Other)
  Sender: PFIZER
  Company Number: CA-PFIZER INC-202400041684

PATIENT
  Age: 81 Year
  Sex: Female

DRUGS (2)
  1. RUXIENCE [Suspect]
     Active Substance: RITUXIMAB-PVVR
     Indication: Granulomatosis with polyangiitis
     Route: 042
     Dates: start: 20240125, end: 20240208
  2. RUXIENCE [Suspect]
     Active Substance: RITUXIMAB-PVVR
     Route: 042
     Dates: start: 20240723

REACTIONS (7)
  - Pulmonary oedema [Not Recovered/Not Resolved]
  - Pneumonia [Unknown]
  - Chronic kidney disease [Unknown]
  - Urinary tract infection pseudomonal [Recovered/Resolved]
  - Pseudomonas infection [Recovered/Resolved]
  - Cough [Recovering/Resolving]
  - Off label use [Unknown]

NARRATIVE: CASE EVENT DATE: 20240101
